FAERS Safety Report 9099288 (Version 2)
Quarter: 2013Q3

REPORT INFORMATION
  Report Type: Spontaneous
  Country: BR (occurrence: BR)
  Receive Date: 20130213
  Receipt Date: 20130717
  Transmission Date: 20140515
  Serious: Yes (Other)
  Sender: FDA-Public Use
  Company Number: BR-AMGEN-BRASP2012046725

PATIENT
  Age: 64 Year
  Sex: Female
  Weight: 52 kg

DRUGS (3)
  1. ENBREL [Suspect]
     Indication: RHEUMATOID ARTHRITIS
     Dosage: 25 MG, TWICE A WEEK
     Route: 058
     Dates: start: 2005
  2. ARAVA [Concomitant]
     Dosage: 20 MG, 1 TABLET ONCE A DAY
     Route: 048
     Dates: start: 2005
  3. SELOKEN                            /00376902/ [Concomitant]
     Dosage: 25 MG, 1 TABLET ONCE A DAY
     Route: 048

REACTIONS (5)
  - Muscle rupture [Unknown]
  - Rheumatic disorder [Unknown]
  - Injection site pruritus [Unknown]
  - Injection site erythema [Unknown]
  - Injection site haematoma [Unknown]
